FAERS Safety Report 14124615 (Version 1)
Quarter: 2017Q4

REPORT INFORMATION
  Report Type: Spontaneous
  Country: US (occurrence: US)
  Receive Date: 20171025
  Receipt Date: 20171025
  Transmission Date: 20180321
  Serious: Yes (Other)
  Sender: FDA-Public Use
  Company Number: US-LUNDBECK-DKLU2039036

PATIENT
  Age: 16 Year
  Sex: Female

DRUGS (1)
  1. NORTHERA [Suspect]
     Active Substance: DROXIDOPA
     Indication: ORTHOSTATIC HYPOTENSION
     Route: 048

REACTIONS (4)
  - Gallbladder operation [Unknown]
  - Weight increased [Unknown]
  - Irritability [Unknown]
  - Chest discomfort [Unknown]

NARRATIVE: CASE EVENT DATE: 201708
